FAERS Safety Report 20663389 (Version 2)
Quarter: 2022Q3

REPORT INFORMATION
  Report Type: Spontaneous
  Country: CA (occurrence: CA)
  Receive Date: 20220401
  Receipt Date: 20220712
  Transmission Date: 20221027
  Serious: Yes (Death, Hospitalization, Other)
  Sender: FDA-Public Use
  Company Number: CA-GLAXOSMITHKLINE-CA2022GSK058357

PATIENT

DRUGS (1)
  1. ZANTAC [Suspect]
     Active Substance: RANITIDINE HYDROCHLORIDE
     Indication: Gastrooesophageal reflux disease
     Dosage: UNK, QD
     Route: 065

REACTIONS (8)
  - Death [Fatal]
  - Jaundice [Unknown]
  - Cholangiocarcinoma [Unknown]
  - Bile duct adenocarcinoma [Unknown]
  - Bile duct cancer [Unknown]
  - Cholangitis [Unknown]
  - Biliary tract disorder [Unknown]
  - Biliary neoplasm [Unknown]
